FAERS Safety Report 11752067 (Version 1)
Quarter: 2015Q4

REPORT INFORMATION
  Report Type: Spontaneous
  Country: US (occurrence: US)
  Receive Date: 20151118
  Receipt Date: 20151118
  Transmission Date: 20160304
  Serious: No
  Sender: FDA-Public Use
  Company Number: US-UCBSA-2015021550

PATIENT
  Age: 62 Year
  Sex: Male

DRUGS (1)
  1. POLYTHYLENE GLYCOL 3350 OTC [Suspect]
     Active Substance: POLYETHYLENE GLYCOL 3500
     Indication: COLONOSCOPY
     Dosage: DRINK HALF AT 8 AM AND HALF AT 8 PM
     Dates: start: 20150623, end: 20150623

REACTIONS (1)
  - Drug ineffective [Unknown]

NARRATIVE: CASE EVENT DATE: 20150624
